FAERS Safety Report 23250925 (Version 2)
Quarter: 2024Q1

REPORT INFORMATION
  Report Type: Spontaneous
  Country: US (occurrence: US)
  Receive Date: 20231201
  Receipt Date: 20240226
  Transmission Date: 20240410
  Serious: Yes (Other)
  Sender: FDA-Public Use
  Company Number: US-SA-SAC20231130000857

PATIENT
  Age: 72 Year
  Sex: Female

DRUGS (1)
  1. DUPIXENT [Suspect]
     Active Substance: DUPILUMAB
     Dosage: 300 MG, QOW
     Route: 058

REACTIONS (6)
  - Cataract [Unknown]
  - Corneal abrasion [Unknown]
  - Cough [Unknown]
  - Hypopnoea [Unknown]
  - Respiratory syncytial virus infection [Recovering/Resolving]
  - Inappropriate schedule of product administration [Unknown]
